FAERS Safety Report 6087685-1 (Version None)
Quarter: 2009Q1

REPORT INFORMATION
  Report Type: 
  Country: None (occurrence: None)
  Receive Date: 20090223
  Receipt Date: 20090210
  Transmission Date: 20090719
  Serious: Yes (Hospitalization)
  Sender: FDA-Public Use
  Company Number: RS-ROCHE-614114

PATIENT
  Sex: Male
  Weight: 70 kg

DRUGS (1)
  1. PEGASYS [Suspect]
     Route: 058
     Dates: start: 20080114

REACTIONS (1)
  - VASCULITIS [None]
